FAERS Safety Report 4704163-X (Version None)
Quarter: 2005Q2

REPORT INFORMATION
  Report Type: 
  Country: None (occurrence: None)
  Receive Date: 20050629
  Receipt Date: 20050621
  Transmission Date: 20051028
  Serious: Yes (Hospitalization, Other)
  Sender: FDA-Public Use
  Company Number: ERD2003A00123

PATIENT
  Age: 64 Year
  Sex: Male

DRUGS (10)
  1. PIOGLITAZONE HCL [Suspect]
     Indication: DIABETES MELLITUS NON-INSULIN-DEPENDENT
     Dosage: SEE IMAGE
     Route: 048
     Dates: start: 20020411, end: 20030723
  2. PIOGLITAZONE HCL [Suspect]
     Indication: DIABETES MELLITUS NON-INSULIN-DEPENDENT
     Dosage: SEE IMAGE
     Route: 048
     Dates: start: 20040303
  3. HUMALOG [Concomitant]
  4. INSULATARD NPH HUMAN [Concomitant]
  5. ACTRAPID (INSULIN [Concomitant]
  6. METFORMIN (METFORMIN) [Concomitant]
  7. CELECTOL 200 (CELIPROLOL) [Concomitant]
  8. COVERSYL (PERINDOPRIL) [Concomitant]
  9. TAHOR 40 (ATORVASTATIN CALCIUM) [Concomitant]
  10. KARDEGIC (ACETYLSALICYLATE LYSINE) [Concomitant]

REACTIONS (1)
  - PANCREATITIS [None]
